FAERS Safety Report 21354487 (Version 2)
Quarter: 2023Q1

REPORT INFORMATION
  Report Type: Spontaneous
  Country: US (occurrence: US)
  Receive Date: 20220920
  Receipt Date: 20230120
  Transmission Date: 20230418
  Serious: No
  Sender: FDA-Public Use
  Company Number: US-NOVARTISTESTPH-NVSC2022US212200

PATIENT
  Age: 52 Year
  Sex: Female

DRUGS (4)
  1. MEKINIST [Suspect]
     Active Substance: TRAMETINIB DIMETHYL SULFOXIDE
     Indication: Bronchial carcinoma
     Dosage: 2 MG, QD
     Route: 048
     Dates: start: 20220615
  2. MEKINIST [Suspect]
     Active Substance: TRAMETINIB DIMETHYL SULFOXIDE
     Indication: Metastases to lung
  3. TAFINLAR [Suspect]
     Active Substance: DABRAFENIB MESYLATE
     Indication: Bronchial carcinoma
     Dosage: 100 MG, Q12H
     Route: 048
     Dates: start: 20220615
  4. TAFINLAR [Suspect]
     Active Substance: DABRAFENIB MESYLATE
     Indication: Metastases to lung

REACTIONS (9)
  - Joint swelling [Unknown]
  - Pain [Unknown]
  - Memory impairment [Unknown]
  - Fatigue [Unknown]
  - Erythema [Unknown]
  - Vision blurred [Unknown]
  - Pyrexia [Unknown]
  - Chills [Unknown]
  - Alopecia [Unknown]

NARRATIVE: CASE EVENT DATE: 20220801
